FAERS Safety Report 21183145 (Version 2)
Quarter: 2022Q3

REPORT INFORMATION
  Report Type: Spontaneous
  Country: US (occurrence: US)
  Receive Date: 20220808
  Receipt Date: 20220929
  Transmission Date: 20221027
  Serious: No
  Sender: FDA-Public Use
  Company Number: US-drreddys-SPO/USA/22/0153045

PATIENT
  Age: 41 Year
  Sex: Female

DRUGS (10)
  1. ZIPRASIDONE [Suspect]
     Active Substance: ZIPRASIDONE
     Indication: Substance-induced mood disorder
  2. ZIPRASIDONE [Suspect]
     Active Substance: ZIPRASIDONE
     Indication: Rebound psychosis
  3. ZIPRASIDONE [Suspect]
     Active Substance: ZIPRASIDONE
     Indication: Substance-induced psychotic disorder
  4. ZIPRASIDONE [Suspect]
     Active Substance: ZIPRASIDONE
     Indication: Mania
  5. ZIPRASIDONE [Suspect]
     Active Substance: ZIPRASIDONE
     Indication: Drug withdrawal syndrome
  6. LAMOTRIGINE [Concomitant]
     Active Substance: LAMOTRIGINE
     Indication: Substance-induced psychotic disorder
     Dosage: NIGHTLY (WAS LATER CHANGED FROM NIGHT TO MORNING DOSING)
  7. LAMOTRIGINE [Concomitant]
     Active Substance: LAMOTRIGINE
     Indication: Drug withdrawal syndrome
  8. LAMOTRIGINE [Concomitant]
     Active Substance: LAMOTRIGINE
     Indication: Substance-induced mood disorder
  9. LAMOTRIGINE [Concomitant]
     Active Substance: LAMOTRIGINE
     Indication: Rebound psychosis
  10. LAMOTRIGINE [Concomitant]
     Active Substance: LAMOTRIGINE
     Indication: Mania

REACTIONS (1)
  - Dizziness [Unknown]
